FAERS Safety Report 13374026 (Version 1)
Quarter: 2017Q1

REPORT INFORMATION
  Report Type: Spontaneous
  Country: US (occurrence: US)
  Receive Date: 20170327
  Receipt Date: 20170327
  Transmission Date: 20170429
  Serious: No
  Sender: FDA-Public Use
  Company Number: US-ASTRAZENECA-2017SE28303

PATIENT
  Age: 25295 Day
  Sex: Female
  Weight: 59.9 kg

DRUGS (2)
  1. BYETTA [Suspect]
     Active Substance: EXENATIDE
     Indication: TYPE 2 DIABETES MELLITUS
     Route: 058
  2. METFORMIN [Concomitant]
     Active Substance: METFORMIN HYDROCHLORIDE
     Indication: DIABETES MELLITUS
     Dosage: TWO TIMES A DAY, STARTED ABOUT 8 YEARS AGO.
     Route: 048

REACTIONS (4)
  - Device malfunction [Unknown]
  - Cataract [Unknown]
  - Circumstance or information capable of leading to medication error [Unknown]
  - Foot deformity [Recovering/Resolving]

NARRATIVE: CASE EVENT DATE: 20170312
